FAERS Safety Report 16392640 (Version 1)
Quarter: 2019Q2

REPORT INFORMATION
  Report Type: Report from Study
  Country: JP (occurrence: JP)
  Receive Date: 20190605
  Receipt Date: 20190605
  Transmission Date: 20190711
  Serious: Yes (Hospitalization, Other)
  Sender: FDA-Public Use
  Company Number: JP-CELLTRION INC.-2017JP009656

PATIENT

DRUGS (19)
  1. INFLIXIMAB BS FOR I.V. INFUSION100 MG [NK] [Suspect]
     Active Substance: INFLIXIMAB
     Dosage: 500 MG/BODY/DAY
     Route: 042
     Dates: start: 20171213, end: 20171213
  2. IMURAN [Concomitant]
     Active Substance: AZATHIOPRINE
     Indication: CROHN^S DISEASE
     Dosage: 75 MG, DAILY
     Dates: start: 20140924
  3. DAIPHEN [Concomitant]
     Active Substance: SULFAMETHOXAZOLE\TRIMETHOPRIM
     Indication: PROPHYLAXIS
     Dosage: 1 G, DAILY
     Dates: start: 20170121, end: 20170416
  4. INFLIXIMAB BS FOR I.V. INFUSION100 MG [NK] [Suspect]
     Active Substance: INFLIXIMAB
     Dosage: 530 MG/BODY/DAY
     Route: 042
     Dates: start: 20180404, end: 20180404
  5. ELNEOPA NO.2 [Concomitant]
     Active Substance: AMINO ACIDS\DEXTROSE\ELECTROLYTES NOS\MINERALS\VITAMINS
     Indication: CROHN^S DISEASE
     Dosage: 2000 ML, DAILY
     Dates: start: 20150327, end: 20170922
  6. LANSOPRAZOLE. [Concomitant]
     Active Substance: LANSOPRAZOLE
     Indication: CROHN^S DISEASE
     Dosage: 30 MG, DAILY
     Dates: start: 20131120, end: 20170517
  7. PRANLUKAST [Concomitant]
     Active Substance: PRANLUKAST
     Indication: GASTROENTERITIS EOSINOPHILIC
     Dosage: 900 MG/DAY
     Dates: start: 20170703, end: 20180509
  8. INFLIXIMAB BS FOR I.V. INFUSION100 MG [NK] [Suspect]
     Active Substance: INFLIXIMAB
     Dosage: 530 MG/BODY/DAY
     Route: 042
     Dates: start: 20170828, end: 20170828
  9. INFLIXIMAB BS FOR I.V. INFUSION100 MG [NK] [Suspect]
     Active Substance: INFLIXIMAB
     Dosage: 530 MG/BODY/DAY
     Route: 042
     Dates: start: 20180207, end: 20180207
  10. FEXOFENADINE HYDROCHLORIDE. [Concomitant]
     Active Substance: FEXOFENADINE HYDROCHLORIDE
     Indication: GASTROENTERITIS EOSINOPHILIC
     Dosage: 120 MG/DAY
     Dates: start: 20170703, end: 20180509
  11. INFLIXIMAB BS FOR I.V. INFUSION100 MG [NK] [Suspect]
     Active Substance: INFLIXIMAB
     Dosage: 530 MG/BODY/DAY
     Route: 042
     Dates: start: 20180530
  12. CALONAL [Concomitant]
     Active Substance: ACETAMINOPHEN
     Indication: CROHN^S DISEASE
     Dosage: 1500 MG, DAILY
     Dates: start: 20170119, end: 20170515
  13. INFLIXIMAB BS FOR I.V. INFUSION100 MG [NK] [Suspect]
     Active Substance: INFLIXIMAB
     Indication: CROHN^S DISEASE
     Dosage: 530 MG/BODY/DAY
     Route: 042
     Dates: start: 20170120, end: 20170120
  14. INFLIXIMAB BS FOR I.V. INFUSION100 MG [NK] [Suspect]
     Active Substance: INFLIXIMAB
     Dosage: 530 MG/BODY/DAY
     Route: 042
     Dates: start: 20170313, end: 20170313
  15. PREDONINE [Concomitant]
     Active Substance: PREDNISOLONE
     Indication: CROHN^S DISEASE
     Dosage: 2.5 MG, QD
     Dates: start: 20180207
  16. INFLIXIMAB BS FOR I.V. INFUSION100 MG [NK] [Suspect]
     Active Substance: INFLIXIMAB
     Dosage: 530 MG/BODY/DAY
     Route: 042
     Dates: start: 20170508, end: 20170508
  17. INFLIXIMAB BS FOR I.V. INFUSION100 MG [NK] [Suspect]
     Active Substance: INFLIXIMAB
     Dosage: 530 MG/BODY/DAY
     Route: 042
     Dates: start: 20170703, end: 20170703
  18. INFLIXIMAB BS FOR I.V. INFUSION100 MG [NK] [Suspect]
     Active Substance: INFLIXIMAB
     Dosage: 530 MG/BODY/DAY
     Route: 042
     Dates: start: 20171019, end: 20171019
  19. CAMOSTAT MESILATE [Concomitant]
     Active Substance: CAMOSTAT MESYLATE
     Indication: PANCREATITIS CHRONIC
     Dosage: 600 MG/DAY
     Dates: start: 20170703, end: 20180404

REACTIONS (4)
  - Pneumonia [Unknown]
  - Candida sepsis [Recovered/Resolved]
  - Cholangitis [Recovered/Resolved]
  - Inappropriate schedule of product administration [Unknown]

NARRATIVE: CASE EVENT DATE: 20170913
